FAERS Safety Report 25450002 (Version 1)
Quarter: 2025Q2

REPORT INFORMATION
  Report Type: Spontaneous
  Country: ES (occurrence: ES)
  Receive Date: 20250618
  Receipt Date: 20250618
  Transmission Date: 20250717
  Serious: Yes (Hospitalization)
  Sender: DR REDDYS
  Company Number: ES-RDY-ESP/2025/06/008457

PATIENT
  Age: 57 Year
  Sex: Female

DRUGS (1)
  1. TREPROSTINIL [Suspect]
     Active Substance: TREPROSTINIL
     Indication: Product used for unknown indication
     Route: 042
     Dates: start: 202312

REACTIONS (3)
  - Puncture site reaction [Recovering/Resolving]
  - Infusion site swelling [Recovering/Resolving]
  - Infusion site erythema [Recovering/Resolving]

NARRATIVE: CASE EVENT DATE: 20250606
